FAERS Safety Report 26205768 (Version 1)
Quarter: 2025Q4

REPORT INFORMATION
  Report Type: Spontaneous
  Country: US (occurrence: US)
  Receive Date: 20251229
  Receipt Date: 20251229
  Transmission Date: 20260117
  Serious: Yes (Hospitalization, Other)
  Sender: SUNOVION
  Company Number: US-SMPA-2025SPA017933

PATIENT
  Age: 82 Year
  Sex: Male

DRUGS (20)
  1. ORGOVYX [Suspect]
     Active Substance: RELUGOLIX
     Indication: Prostate cancer
     Dosage: 360 MG, SINGLE
     Route: 048
  2. ORGOVYX [Suspect]
     Active Substance: RELUGOLIX
     Dosage: 120 MG, QD
     Route: 048
  3. LISINOPRIL [Concomitant]
     Active Substance: LISINOPRIL
  4. TAMSULOSIN HYDROCHLORIDE [Concomitant]
     Active Substance: TAMSULOSIN HYDROCHLORIDE
  5. ATORVASTATIN CALCIUM [Concomitant]
     Active Substance: ATORVASTATIN CALCIUM
  6. FINASTERIDE [Concomitant]
     Active Substance: FINASTERIDE
  7. JARDIANCE [Concomitant]
     Active Substance: EMPAGLIFLOZIN
  8. VITAMINS [Concomitant]
     Active Substance: VITAMINS
  9. PENTOXIFYLLINE [Concomitant]
     Active Substance: PENTOXIFYLLINE
  10. POTASSIUM [Concomitant]
     Active Substance: POTASSIUM
  11. VITAMIN D [Concomitant]
     Active Substance: VITAMIN D NOS
  12. VITAMIN B12 [Concomitant]
     Active Substance: CYANOCOBALAMIN
  13. VITAMIN C [Concomitant]
     Active Substance: ASCORBIC ACID
  14. ZINC [Concomitant]
     Active Substance: ZINC
  15. ELIQUIS [Concomitant]
     Active Substance: APIXABAN
  16. FUROSEMIDE [Concomitant]
     Active Substance: FUROSEMIDE
  17. PANTOPRAZOLE [Concomitant]
     Active Substance: PANTOPRAZOLE
  18. SOLIFENACIN SUCCINATE [Concomitant]
     Active Substance: SOLIFENACIN SUCCINATE
  19. SOLIQUA 100/33 [Concomitant]
     Active Substance: INSULIN GLARGINE\LIXISENATIDE
     Route: 058
  20. MYRBETRIQ [Concomitant]
     Active Substance: MIRABEGRON

REACTIONS (1)
  - Pneumonia [Unknown]
